FAERS Safety Report 7416463-3 (Version None)
Quarter: 2011Q2

REPORT INFORMATION
  Report Type: 
  Country: None (occurrence: None)
  Receive Date: 20110414
  Receipt Date: 20090109
  Transmission Date: 20111010
  Serious: Yes (Other)
  Sender: FDA-Public Use
  Company Number: US-BAYER-200912308NA

PATIENT
  Age: 51 Year
  Sex: Male
  Weight: 63.492 kg

DRUGS (24)
  1. TRASYLOL [Suspect]
     Indication: PNEUMONECTOMY
     Dosage: UNK
     Route: 042
     Dates: start: 20050607, end: 20050607
  2. EPINEPHRINE [Concomitant]
     Dosage: UNK
     Route: 042
     Dates: start: 20050607
  3. RED BLOOD CELLS [Concomitant]
     Dosage: 3 U, UNK
     Route: 042
     Dates: start: 20050607, end: 20050607
  4. TRASYLOL [Suspect]
     Indication: INTRA-AORTIC BALLOON PLACEMENT
  5. COLISTIN SULFATE [Concomitant]
     Dosage: 75 MG AEROSOL NEBULIZER, BID
     Dates: start: 20050602, end: 20050628
  6. FORANE [Concomitant]
     Dosage: UNK
     Dates: start: 20050607, end: 20050607
  7. PROTAMINE SULFATE [Concomitant]
     Dosage: 500 MG, UNK
     Route: 042
     Dates: start: 20050607, end: 20050607
  8. FENTANYL [Concomitant]
     Dosage: UNK
     Route: 042
     Dates: start: 20050607, end: 20050607
  9. TRASYLOL [Suspect]
     Indication: LUNG TRANSPLANT
  10. PROPOFOL [Concomitant]
     Dosage: UNK
     Dates: start: 20050607, end: 20050607
  11. SUCCINYLCHOLINE CHLORIDE [Concomitant]
     Dosage: UNK
     Dates: start: 20050607, end: 20050607
  12. TRASYLOL [Suspect]
     Indication: MITRAL VALVE REPAIR
  13. FOSAMAX [Concomitant]
     Dosage: 10 MG, QD
     Route: 048
     Dates: start: 20050602, end: 20050628
  14. PRILOSEC [Concomitant]
     Dosage: 1 TABLET  UNK, QD
     Route: 048
     Dates: start: 20050607
  15. VECURONIUM BROMIDE [Concomitant]
     Dosage: UNK
     Dates: start: 20050607
  16. FLOVENT [Concomitant]
     Dosage: 220MCG INHALED UNK, UNK
     Dates: start: 20050607, end: 20050628
  17. FLONASE [Concomitant]
     Dosage: 50MCG UNK, UNK
     Dates: start: 20050607, end: 20050628
  18. NITROGLYCERIN [Concomitant]
     Dosage: UNK
     Route: 042
     Dates: start: 20050607, end: 20050607
  19. HEPARIN [Concomitant]
     Dosage: 100000 U, UNK
     Route: 042
     Dates: start: 20050607, end: 20050607
  20. FRESH FROZEN PLASMA [Concomitant]
     Dosage: 6 U, UNK
     Route: 042
     Dates: start: 20050607, end: 20050607
  21. ZITHROMAX [Concomitant]
     Dosage: 250 MG, QD
     Route: 048
     Dates: start: 20050607, end: 20050628
  22. ALBUTEROL [Concomitant]
     Dosage: 90MCG INHALATION UNK, UNK
     Dates: start: 20050607, end: 20050706
  23. CLARITIN [Concomitant]
     Dosage: 10 MG, QD
     Route: 048
     Dates: start: 20050607
  24. MIDAZOLAM [Concomitant]
     Dosage: UNK
     Dates: start: 20050607

REACTIONS (8)
  - MYOCARDIAL INFARCTION [None]
  - CEREBROVASCULAR ACCIDENT [None]
  - UNEVALUABLE EVENT [None]
  - RENAL FAILURE [None]
  - RENAL FAILURE ACUTE [None]
  - PAIN [None]
  - AIR EMBOLISM [None]
  - INJURY [None]
